FAERS Safety Report 15448805 (Version 1)
Quarter: 2018Q3

REPORT INFORMATION
  Report Type: Report from Study
  Country: CA (occurrence: CA)
  Receive Date: 20180929
  Receipt Date: 20180929
  Transmission Date: 20181010
  Serious: Yes (Other)
  Sender: FDA-Public Use
  Company Number: PHHY2018CA079120

PATIENT
  Age: 49 Year
  Sex: Male
  Weight: 106 kg

DRUGS (4)
  1. TRAMETINIB [Suspect]
     Active Substance: TRAMETINIB
     Indication: METASTATIC MALIGNANT MELANOMA
     Dosage: 2 MG, QD
     Route: 048
     Dates: start: 20180703
  2. TRAMETINIB [Suspect]
     Active Substance: TRAMETINIB
     Dosage: 1.5 MG, UNK
     Route: 048
  3. DABRAFENIB [Suspect]
     Active Substance: DABRAFENIB
     Indication: METASTATIC MALIGNANT MELANOMA
     Dosage: 150 MG, BID
     Route: 048
     Dates: start: 20180703
  4. DABRAFENIB [Suspect]
     Active Substance: DABRAFENIB
     Dosage: 100 MG, UNK
     Route: 048

REACTIONS (26)
  - Neutropenia [Unknown]
  - Blood bicarbonate increased [Unknown]
  - Ear infection [Unknown]
  - Hyperhidrosis [Unknown]
  - Ejection fraction decreased [Not Recovered/Not Resolved]
  - Aspartate aminotransferase increased [Recovering/Resolving]
  - Myelocyte count increased [Unknown]
  - Blood chloride decreased [Unknown]
  - Blood magnesium increased [Unknown]
  - Pancytopenia [Unknown]
  - Thrombocytopenia [Unknown]
  - Gamma-glutamyltransferase increased [Recovering/Resolving]
  - Alanine aminotransferase increased [Recovering/Resolving]
  - Heart rate increased [Unknown]
  - Decreased appetite [Recovering/Resolving]
  - Pyrexia [Recovering/Resolving]
  - Malaise [Unknown]
  - Blood pressure systolic increased [Unknown]
  - Headache [Unknown]
  - Blood lactate dehydrogenase increased [Unknown]
  - Chills [Recovered/Resolved]
  - Lymphocyte count decreased [Recovered/Resolved]
  - Metamyelocyte percentage increased [Unknown]
  - Hepatic steatosis [Unknown]
  - Blood alkaline phosphatase increased [Unknown]
  - Influenza like illness [Recovering/Resolving]

NARRATIVE: CASE EVENT DATE: 20180703
